FAERS Safety Report 4908035-7 (Version None)
Quarter: 2006Q1

REPORT INFORMATION
  Report Type: 
  Country: None (occurrence: None)
  Receive Date: 20060210
  Receipt Date: 20060208
  Transmission Date: 20060701
  Serious: Yes (Other)
  Sender: FDA-Public Use
  Company Number: 200610563EU

PATIENT
  Age: 59 Year
  Sex: Female

DRUGS (1)
  1. NICORETTE [Suspect]
     Indication: DRUG USE FOR UNKNOWN INDICATION
     Dosage: 2MG SEE DOSAGE TEXT
     Route: 002
     Dates: start: 20030101

REACTIONS (1)
  - EMPHYSEMA [None]
